FAERS Safety Report 5778602-X (Version None)
Quarter: 2008Q2

REPORT INFORMATION
  Report Type: 
  Country: None (occurrence: None)
  Receive Date: 20080619
  Receipt Date: 20080610
  Transmission Date: 20081010
  Serious: Yes (Hospitalization, Disabling, Other)
  Sender: FDA-Public Use
  Company Number: US-JNJFOC-20080106546

PATIENT
  Sex: Male
  Weight: 89.4 kg

DRUGS (2)
  1. REMICADE [Suspect]
     Indication: IRRITABLE BOWEL SYNDROME
     Dosage: GREATER THAN 3 YEARS
  2. PREVACID [Concomitant]
     Indication: UNEVALUABLE EVENT
     Dosage: FOR MORE THEN 3 YEARS

REACTIONS (3)
  - ANEURYSMAL BONE CYST [None]
  - BONE GRAFT [None]
  - IMPAIRED HEALING [None]
